FAERS Safety Report 9233086 (Version 1)
Quarter: 2013Q2

REPORT INFORMATION
  Report Type: Spontaneous
  Country: US (occurrence: None)
  Receive Date: 20130415
  Receipt Date: 20130415
  Transmission Date: 20140414
  Serious: No
  Sender: FDA-Public Use
  Company Number: None

PATIENT
  Age: 70 None
  Sex: Male
  Weight: 79.5 kg

DRUGS (1)
  1. ATORVASTATIN [Suspect]
     Route: 048
     Dates: start: 20121012, end: 20130114

REACTIONS (1)
  - Musculoskeletal pain [None]
